FAERS Safety Report 8852838 (Version 4)
Quarter: 2012Q4

REPORT INFORMATION
  Report Type: 
  Country: US (occurrence: US)
  Receive Date: 20121022
  Receipt Date: 20121218
  Transmission Date: 20130627
  Serious: No
  Sender: FDA-Public Use
  Company Number: US-VERTEX PHARMACEUTICAL INC.-2012-022935

PATIENT
  Age: 49 Year
  Sex: Male
  Weight: 98 kg

DRUGS (6)
  1. VX-950 (TELAPREVIR) [Suspect]
     Indication: HEPATITIS C
     Dosage: 750 mg, tid
     Route: 048
     Dates: start: 20121005
  2. RIBAVIRIN [Suspect]
     Indication: HEPATITIS C
     Dosage: 3 DF, bid
     Route: 048
     Dates: start: 20121005
  3. PEGASYS [Suspect]
     Indication: HEPATITIS C
     Dosage: 180 ?g, qw
     Route: 058
     Dates: start: 20121005
  4. LOFIBRA                            /00465701/ [Concomitant]
     Indication: BLOOD CHOLESTEROL
  5. MELOXICAM [Concomitant]
     Indication: ARTHRALGIA
  6. KLONOPIN [Concomitant]
     Indication: ANXIETY
     Dosage: 0.5 mg, bid
     Route: 048

REACTIONS (7)
  - Hypotension [Recovered/Resolved]
  - Insomnia [Not Recovered/Not Resolved]
  - Rash papular [Recovered/Resolved]
  - Platelet count decreased [Not Recovered/Not Resolved]
  - Pruritus [Not Recovered/Not Resolved]
  - Nausea [Not Recovered/Not Resolved]
  - Diarrhoea [Not Recovered/Not Resolved]
